FAERS Safety Report 18363818 (Version 1)
Quarter: 2020Q4

REPORT INFORMATION
  Report Type: Spontaneous
  Country: CA (occurrence: CA)
  Receive Date: 20201009
  Receipt Date: 20201009
  Transmission Date: 20210114
  Serious: Yes (Other)
  Sender: FDA-Public Use
  Company Number: CA-JNJFOC-20201002005

PATIENT
  Age: 52 Year
  Sex: Female

DRUGS (3)
  1. CICLOSPORIN [Concomitant]
     Active Substance: CYCLOSPORINE
     Dosage: THERAPY DURATION: 245
  2. INFLIXIMAB, RECOMBINANT [Suspect]
     Active Substance: INFLIXIMAB
     Indication: IRITIS
     Dosage: THERAPY DURATION: 456
     Route: 042
  3. CICLOSPORIN [Concomitant]
     Active Substance: CYCLOSPORINE
     Dosage: UNKNOWN DOSE 2 EVERY 1 DAYS

REACTIONS (5)
  - Psoriatic arthropathy [Unknown]
  - Product use in unapproved indication [Unknown]
  - Psoriasis [Unknown]
  - Spondylitis [Unknown]
  - Off label use [Unknown]
